FAERS Safety Report 8550167-9 (Version None)
Quarter: 2012Q3

REPORT INFORMATION
  Report Type: 
  Country: None (occurrence: None)
  Receive Date: 20120730
  Receipt Date: 20120717
  Transmission Date: 20120928
  Serious: Yes (Hospitalization)
  Sender: FDA-Public Use
  Company Number: US-ACTELION-A-NJ2012-67752

PATIENT
  Age: 75 Year
  Sex: Female

DRUGS (2)
  1. ASPIRIN [Concomitant]
  2. TRACLEER [Suspect]
     Indication: PULMONARY ARTERIAL HYPERTENSION
     Dosage: UNK
     Route: 048
     Dates: start: 20081128

REACTIONS (5)
  - FALL [None]
  - DRUG DOSE OMISSION [None]
  - HIP FRACTURE [None]
  - JOINT DISLOCATION [None]
  - SURGERY [None]
